FAERS Safety Report 5002306-4 (Version None)
Quarter: 2006Q2

REPORT INFORMATION
  Report Type: 
  Country: None (occurrence: None)
  Receive Date: 20060512
  Receipt Date: 20060428
  Transmission Date: 20061013
  Serious: Yes (Other)
  Sender: FDA-Public Use
  Company Number: GB2006050000285

PATIENT
  Age: 7 Year
  Sex: Female
  Weight: 25.1 kg

DRUGS (2)
  1. STRATTERA [Suspect]
     Indication: ATTENTION DEFICIT/HYPERACTIVITY DISORDER
     Dosage: 25 MG, ORAL
     Route: 048
     Dates: start: 20060220, end: 20060405
  2. CONCERTA [Concomitant]

REACTIONS (4)
  - ANXIETY [None]
  - CONDITION AGGRAVATED [None]
  - DEPRESSION [None]
  - EMOTIONAL DISORDER [None]
